FAERS Safety Report 8399623-7 (Version None)
Quarter: 2012Q2

REPORT INFORMATION
  Report Type: 
  Country: None (occurrence: None)
  Receive Date: 20120531
  Receipt Date: 20120518
  Transmission Date: 20120825
  Serious: Yes (Death, Other)
  Sender: FDA-Public Use
  Company Number: US-ROCHE-1072673

PATIENT
  Age: 44 Year
  Sex: Female

DRUGS (1)
  1. ALTEPLASE [Suspect]
     Indication: DEEP VEIN THROMBOSIS

REACTIONS (11)
  - RADIAL PULSE ABNORMAL [None]
  - REPERFUSION INJURY [None]
  - MULTI-ORGAN FAILURE [None]
  - RESPIRATORY FAILURE [None]
  - LACTIC ACIDOSIS [None]
  - DYSPNOEA [None]
  - RENAL FAILURE ACUTE [None]
  - EXTREMITY NECROSIS [None]
  - PYREXIA [None]
  - COMPARTMENT SYNDROME [None]
  - ACIDOSIS [None]
